FAERS Safety Report 4987638-8 (Version None)
Quarter: 2006Q2

REPORT INFORMATION
  Report Type: 
  Country: None (occurrence: None)
  Receive Date: 20060424
  Receipt Date: 20060404
  Transmission Date: 20061013
  Serious: Yes (Other)
  Sender: FDA-Public Use
  Company Number: US200604001237

PATIENT
  Age: 82 Year
  Sex: Male

DRUGS (11)
  1. CYMBALTA [Suspect]
     Dosage: 30 MG, DAILY (1/D), ORAL : 60 MG, DAILY (1/D), ORAL
     Route: 048
     Dates: start: 20051101
  2. AMBIEN [Concomitant]
  3. CLONIDINE [Concomitant]
  4. DIGOXIN [Concomitant]
  5. GABAPENTIN [Concomitant]
  6. K-DUR 10 [Concomitant]
  7. LASIX (FUROSEMIDE, FUROSEMIDE SODIUM) [Concomitant]
  8. LORAZEPAM [Concomitant]
  9. PRILOSEC [Concomitant]
  10. UNIVASC [Concomitant]
  11. METHADONE HCL [Concomitant]

REACTIONS (1)
  - BLOOD PRESSURE INCREASED [None]
